FAERS Safety Report 21854827 (Version 1)
Quarter: 2023Q1

REPORT INFORMATION
  Report Type: Spontaneous
  Country: NL (occurrence: NL)
  Receive Date: 20230112
  Receipt Date: 20230112
  Transmission Date: 20230417
  Serious: Yes (Life-Threatening, Hospitalization)
  Sender: FDA-Public Use
  Company Number: None

PATIENT
  Sex: Male
  Weight: 78.5 kg

DRUGS (19)
  1. IBUPROFEN [Suspect]
     Active Substance: IBUPROFEN
     Indication: Pain
     Dosage: SOFT CAPSULE
     Route: 065
     Dates: start: 20200101, end: 20221103
  2. METFORMIN [Suspect]
     Active Substance: METFORMIN HYDROCHLORIDE
     Indication: Type 2 diabetes mellitus
     Dosage: 3X PER DAY,
     Route: 065
     Dates: start: 20190101, end: 20221103
  3. DICLOFENAC [Suspect]
     Active Substance: DICLOFENAC
     Indication: Pain
     Dosage: UNK
     Route: 065
     Dates: start: 20200101, end: 20221103
  4. CYANOCOBALAMIN [Concomitant]
     Active Substance: CYANOCOBALAMIN
     Route: 065
  5. SUNITINIB [Concomitant]
     Active Substance: SUNITINIB
     Dosage: 1X PER DAY,1
     Route: 065
  6. FUROSEMIDE [Concomitant]
     Active Substance: FUROSEMIDE
     Dosage: 40 MG, ORAL, 1X PER DAY,
     Route: 048
  7. SPIRONOLACTONE [Concomitant]
     Active Substance: SPIRONOLACTONE
     Dosage: 1DD1
     Route: 065
  8. ROSUVASTATIN [Concomitant]
     Active Substance: ROSUVASTATIN
     Dosage: 1X PER DAY1
     Route: 065
  9. VITAMIN D3 [Concomitant]
     Active Substance: CHOLECALCIFEROL
     Route: 065
  10. PANTOPRAZOLE SODIUM [Concomitant]
     Active Substance: PANTOPRAZOLE SODIUM
     Dosage: 1X PER DAY1
     Route: 065
  11. METOCLOPRAMIDE [Concomitant]
     Active Substance: METOCLOPRAMIDE
     Dosage: 3X PER DAY 1
     Route: 065
  12. IVABRADINE [Concomitant]
     Active Substance: IVABRADINE
     Dosage: 1X PER DAY1
     Route: 065
  13. SUNITINIB [Concomitant]
     Active Substance: SUNITINIB
     Dosage: 1X PER DAY1
     Route: 065
  14. SACUBITRIL\VALSARTAN [Concomitant]
     Active Substance: SACUBITRIL\VALSARTAN
     Dosage: 2X PER DAY, STRENGTH 49/51MG
     Route: 065
  15. NIVOLUMAB [Concomitant]
     Active Substance: NIVOLUMAB
     Dosage: IV INJECTION FLUID
     Route: 065
  16. INSULIN GLARGINE [Concomitant]
     Active Substance: INSULIN GLARGINE
     Dosage: 300E/ML IV INJECTION FLUID
     Route: 065
  17. INSULIN ASPART [Concomitant]
     Active Substance: INSULIN ASPART
     Dosage: IV INJECTION FLUID 100E/ML
     Route: 065
  18. XGEVA [Concomitant]
     Active Substance: DENOSUMAB
     Dosage: VIAL ,1 PIECE, 1X PER 4 WEEKS
     Route: 058
  19. IPILIMUMAB [Concomitant]
     Active Substance: IPILIMUMAB
     Dosage: IV INJECTION FLUID
     Route: 065

REACTIONS (2)
  - Renal failure [Recovered/Resolved]
  - Lactic acidosis [Recovered/Resolved]
